FAERS Safety Report 4873633-6 (Version None)
Quarter: 2005Q4

REPORT INFORMATION
  Report Type: 
  Country: None (occurrence: None)
  Receive Date: 20051201
  Receipt Date: 20050801
  Transmission Date: 20060501
  Serious: No
  Sender: FDA-Public Use
  Company Number: 2005PV000903

PATIENT
  Age: 71 Year
  Sex: Female
  Weight: 84.8226 kg

DRUGS (15)
  1. BYETTA [Suspect]
     Indication: DIABETES MELLITUS NON-INSULIN-DEPENDENT
     Dosage: 5 MCG; BID; SC
     Route: 058
     Dates: start: 20050729
  2. METFORMIN [Concomitant]
  3. LOVASTATIN [Concomitant]
  4. HYDROCHLOROTHIAZIDE [Concomitant]
  5. BENICAR [Concomitant]
  6. CARDIZEM [Concomitant]
  7. ZOLOFT [Concomitant]
  8. PHENTERMINE [Concomitant]
  9. ZITHROMAX [Concomitant]
  10. MUCINEX [Concomitant]
  11. CENTRUM [Concomitant]
  12. FOLIC ACID [Concomitant]
  13. ASPIRIN [Concomitant]
  14. EYE CAPS [Concomitant]
  15. FISH OIL [Concomitant]

REACTIONS (2)
  - NASOPHARYNGITIS [None]
  - NAUSEA [None]
